FAERS Safety Report 10327450 (Version 1)
Quarter: 2014Q3

REPORT INFORMATION
  Report Type: Spontaneous
  Country: US (occurrence: US)
  Receive Date: 20140721
  Receipt Date: 20140721
  Transmission Date: 20150326
  Serious: Yes (Hospitalization)
  Sender: FDA-Public Use
  Company Number: US-AMGEN-USASP2014054073

PATIENT
  Age: 44 Year
  Sex: Female

DRUGS (4)
  1. ENBREL [Suspect]
     Active Substance: ETANERCEPT
     Indication: PSORIASIS
     Dosage: 50 MG, 2 TIMES A WEEK FOR 3 MONTHS, THEN ONCE WEEKLY THEREAFTER
     Route: 058
     Dates: end: 20140630
  2. TOPAMAX [Concomitant]
     Active Substance: TOPIRAMATE
     Indication: PSORIASIS
     Dosage: UNK
  3. CLIMARA [Concomitant]
     Active Substance: ESTRADIOL
     Indication: PSORIASIS
     Dosage: UNK
  4. ARMOUR THYROID [Concomitant]
     Active Substance: THYROID, PORCINE\THYROID, UNSPECIFIED
     Indication: PSORIASIS
     Dosage: UNK

REACTIONS (2)
  - Kidney infection [Unknown]
  - Nephrolithiasis [Unknown]
